FAERS Safety Report 10997368 (Version 1)
Quarter: 2015Q2

REPORT INFORMATION
  Report Type: Spontaneous
  Country: US (occurrence: None)
  Receive Date: 20150407
  Receipt Date: 20150407
  Transmission Date: 20150821
  Serious: Yes (Other)
  Sender: FDA-Public Use
  Company Number: None

PATIENT
  Age: 50 Year
  Sex: Female
  Weight: 58.97 kg

DRUGS (5)
  1. ARMOUR THYROID [Concomitant]
     Active Substance: THYROID, PORCINE\THYROID, UNSPECIFIED
  2. TYLENOL [Concomitant]
     Active Substance: ACETAMINOPHEN
  3. CELEBREX [Suspect]
     Active Substance: CELECOXIB
     Indication: BACK PAIN
  4. PROBIOTIC [Concomitant]
     Active Substance: PROBIOTICS NOS
  5. CELEBREX [Suspect]
     Active Substance: CELECOXIB
     Indication: INFLAMMATION

REACTIONS (5)
  - Oedema [None]
  - Pruritus [None]
  - Burning sensation [None]
  - Peripheral swelling [None]
  - Rash [None]

NARRATIVE: CASE EVENT DATE: 20141217
